FAERS Safety Report 5279608-X (Version None)
Quarter: 2007Q1

REPORT INFORMATION
  Report Type: 
  Country: None (occurrence: None)
  Receive Date: 20070328
  Receipt Date: 20070315
  Transmission Date: 20070707
  Serious: Yes (Hospitalization)
  Sender: FDA-Public Use
  Company Number: DE-PFIZER INC-2007024101

PATIENT
  Sex: Female

DRUGS (3)
  1. SERTRALINE [Suspect]
     Indication: DEPRESSION
     Dosage: DAILY DOSE:50MG
  2. PHENYTOIN [Concomitant]
     Indication: CONVULSION
  3. PHENOBARBITAL TAB [Concomitant]
     Indication: CONVULSION

REACTIONS (3)
  - DELUSION OF REPLACEMENT [None]
  - GRAND MAL CONVULSION [None]
  - PSYCHOTIC DISORDER [None]
